FAERS Safety Report 7313736-X (Version None)
Quarter: 2011Q1

REPORT INFORMATION
  Report Type: 
  Country: None (occurrence: None)
  Receive Date: 20110225
  Receipt Date: 20110125
  Transmission Date: 20110831
  Serious: Yes (Death)
  Sender: FDA-Public Use
  Company Number: US-TYCO HEALTHCARE/MALLINCKRODT-T201100233

PATIENT
  Age: 38 Year
  Sex: Female

DRUGS (5)
  1. HYDROMORPHONE [Suspect]
  2. TOPIRAMATE [Suspect]
  3. VERAPAMIL [Suspect]
  4. OPIOIDS [Suspect]
  5. BENZODIAZEPINE DERIVATIVES [Suspect]

REACTIONS (1)
  - COMPLETED SUICIDE [None]
